FAERS Safety Report 11003214 (Version 2)
Quarter: 2015Q2

REPORT INFORMATION
  Report Type: Report from Study
  Country: BE (occurrence: BE)
  Receive Date: 20150409
  Receipt Date: 20150625
  Transmission Date: 20150821
  Serious: Yes (Hospitalization)
  Sender: FDA-Public Use
  Company Number: BE-ROCHE-1559128

PATIENT
  Age: 60 Year
  Sex: Female
  Weight: 68 kg

DRUGS (13)
  1. EPIRUBICIN [Suspect]
     Active Substance: EPIRUBICIN
     Indication: HER-2 POSITIVE BREAST CANCER
     Route: 065
     Dates: start: 20120606, end: 20120717
  2. FUROSEMIDE. [Concomitant]
     Active Substance: FUROSEMIDE
     Route: 065
     Dates: start: 20140818
  3. ALDACTAZINE [Concomitant]
     Active Substance: ALTHIAZIDE\SPIRONOLACTONE
     Route: 065
     Dates: start: 201402
  4. DOCETAXEL. [Suspect]
     Active Substance: DOCETAXEL
     Indication: HER-2 POSITIVE BREAST CANCER
     Route: 065
     Dates: start: 20120807, end: 20120918
  5. CYCLOPHOSPHAMIDE. [Suspect]
     Active Substance: CYCLOPHOSPHAMIDE
     Indication: HER-2 POSITIVE BREAST CANCER
     Route: 065
     Dates: start: 20120605
  6. GLUCOPHAGE [Concomitant]
     Active Substance: METFORMIN HYDROCHLORIDE
     Route: 065
     Dates: start: 200710
  7. TRASTUZUMAB [Suspect]
     Active Substance: TRASTUZUMAB
     Indication: HER-2 POSITIVE BREAST CANCER
     Dosage: LOADING DOSE
     Route: 065
     Dates: start: 20120807, end: 20120807
  8. FLUOROURACIL. [Suspect]
     Active Substance: FLUOROURACIL
     Indication: HER-2 POSITIVE BREAST CANCER
     Route: 065
     Dates: start: 20120605, end: 20120617
  9. SIMVASTATINE [Concomitant]
     Active Substance: SIMVASTATIN
     Route: 065
     Dates: start: 201010
  10. TRASTUZUMAB [Suspect]
     Active Substance: TRASTUZUMAB
     Dosage: MAINTAINANCE DOSE
     Route: 065
     Dates: start: 20120828, end: 20130806
  11. PLACEBO [Suspect]
     Active Substance: UNSPECIFIED INGREDIENT
     Indication: HER-2 POSITIVE BREAST CANCER
     Dosage: LOADING DOSE
     Route: 065
     Dates: start: 20120807, end: 20120807
  12. PLACEBO [Suspect]
     Active Substance: UNSPECIFIED INGREDIENT
     Dosage: MAINTAINANCE DOSE
     Route: 065
     Dates: start: 20120828, end: 20130806
  13. CALCIUM CARBONATE. [Concomitant]
     Active Substance: CALCIUM CARBONATE
     Route: 065
     Dates: start: 200804

REACTIONS (1)
  - Atrioventricular block second degree [Recovered/Resolved with Sequelae]

NARRATIVE: CASE EVENT DATE: 20150212
